FAERS Safety Report 5944345-2 (Version None)
Quarter: 2008Q4

REPORT INFORMATION
  Report Type: 
  Country: None (occurrence: None)
  Receive Date: 20081105
  Receipt Date: 20081020
  Transmission Date: 20090506
  Serious: Yes (Hospitalization, Other)
  Sender: FDA-Public Use
  Company Number: DSA_62382_2008

PATIENT
  Age: 21 Month
  Sex: Male
  Weight: 13.6079 kg

DRUGS (1)
  1. DIASTAT ACUDIAL [Suspect]
     Indication: CONVULSION
     Dosage: 2.5 MG PRN RECTAL
     Route: 054
     Dates: start: 20081019

REACTIONS (4)
  - CONVULSION [None]
  - DRUG ADMINISTRATION ERROR [None]
  - DRUG DOSE OMISSION [None]
  - PRODUCT QUALITY ISSUE [None]
